FAERS Safety Report 24584135 (Version 2)
Quarter: 2024Q4

REPORT INFORMATION
  Report Type: Spontaneous
  Country: US (occurrence: US)
  Receive Date: 20241106
  Receipt Date: 20241122
  Transmission Date: 20250114
  Serious: Yes (Other)
  Sender: TEVA
  Company Number: US-TEVA-VS-3260715

PATIENT
  Age: 75 Year
  Sex: Male

DRUGS (2)
  1. MEGESTROL [Suspect]
     Active Substance: MEGESTROL
     Indication: Decreased appetite
     Dosage: MEGESTROL ACETATE
     Route: 065
  2. DULAGLUTIDE [Suspect]
     Active Substance: DULAGLUTIDE
     Indication: Type 2 diabetes mellitus
     Route: 065

REACTIONS (3)
  - Weight decreased [Recovering/Resolving]
  - Drug interaction [Unknown]
  - Hyperglycaemia [Recovering/Resolving]
